FAERS Safety Report 7310954-1 (Version None)
Quarter: 2011Q1

REPORT INFORMATION
  Report Type: 
  Country: None (occurrence: None)
  Receive Date: 20110224
  Receipt Date: 20110222
  Transmission Date: 20110831
  Serious: Yes (Life-Threatening, Hospitalization)
  Sender: FDA-Public Use
  Company Number: PHHY2011SE14123

PATIENT
  Sex: Male

DRUGS (3)
  1. TRILEPTAL [Suspect]
     Indication: EPILEPSY
     Dosage: 600 MG, QD
     Route: 048
     Dates: start: 20090928, end: 20101223
  2. KREDEX [Suspect]
     Dosage: 50 MG, QD
     Dates: start: 20091007, end: 20101224
  3. LAMOTRIGINE [Concomitant]
     Dosage: UNK

REACTIONS (6)
  - LOSS OF CONSCIOUSNESS [None]
  - CARDIOVASCULAR INSUFFICIENCY [None]
  - RESPIRATORY ARREST [None]
  - HYPERKALAEMIA [None]
  - ATRIOVENTRICULAR BLOCK [None]
  - ELECTROCARDIOGRAM ABNORMAL [None]
